FAERS Safety Report 7039222-2 (Version None)
Quarter: 2010Q4

REPORT INFORMATION
  Report Type: 
  Country: None (occurrence: None)
  Receive Date: 20101012
  Receipt Date: 20101006
  Transmission Date: 20110411
  Serious: Yes (Other)
  Sender: FDA-Public Use
  Company Number: US-SANOFI-AVENTIS-2010SA060670

PATIENT
  Sex: Male

DRUGS (4)
  1. AMBIEN CR [Suspect]
     Indication: INSOMNIA
     Route: 048
  2. AMIODARONE [Concomitant]
  3. MICARDIS [Concomitant]
  4. WARFARIN SODIUM [Concomitant]

REACTIONS (1)
  - ATRIAL FIBRILLATION [None]
